FAERS Safety Report 9912569 (Version 1)
Quarter: 2014Q1

REPORT INFORMATION
  Report Type: Spontaneous
  Country: TR (occurrence: None)
  Receive Date: 20140218
  Receipt Date: 20140218
  Transmission Date: 20141002
  Serious: Yes (Hospitalization)
  Sender: FDA-Public Use
  Company Number: 2172485

PATIENT
  Age: 3 Year
  Sex: Female
  Weight: 15 kg

DRUGS (8)
  1. FENTANYL CITRATE [Suspect]
     Indication: INDUCTION OF ANAESTHESIA
  2. NITROUS OXIDE [Suspect]
     Indication: GENERAL ANAESTHESIA
     Dosage: NOT RESPPIRATORY
     Route: 055
  3. PROPOFOL [Suspect]
     Indication: INDUCTION OF ANAESTHESIA
  4. ROCURONIUM [Suspect]
     Indication: INDUCTION OF ANAESTHESIA
  5. SEVOFLURANE [Suspect]
     Indication: GENERAL ANAESTHESIA
     Dosage: 2% MINIMUM ALVEOLAR CONCENTRATION, UKNOWN
     Route: 055
  6. CEFTRIAXONE [Concomitant]
  7. DEXAMETHASONE [Concomitant]
  8. MANNITOL [Concomitant]

REACTIONS (5)
  - Anaesthetic complication [None]
  - VIIth nerve paralysis [None]
  - Local swelling [None]
  - Oedema [None]
  - Parotid gland enlargement [None]
